FAERS Safety Report 10563997 (Version 2)
Quarter: 2014Q4

REPORT INFORMATION
  Report Type: Spontaneous
  Country: US (occurrence: US)
  Receive Date: 20141104
  Receipt Date: 20141124
  Transmission Date: 20150529
  Serious: No
  Sender: FDA-Public Use
  Company Number: US-PFIZER INC-2014302325

PATIENT
  Age: 75 Year
  Sex: Female
  Weight: 75 kg

DRUGS (3)
  1. ADVIL [Suspect]
     Active Substance: IBUPROFEN
     Indication: SCIATICA
     Dosage: 200 MG, AT 4-6 HOURS AS NEEDED
  2. ADVIL [Suspect]
     Active Substance: IBUPROFEN
     Indication: PAIN
  3. ADVIL [Suspect]
     Active Substance: IBUPROFEN
     Indication: MUSCLE SPASMS
     Dosage: 400 MG OF 6 HOURS AS LONGER, TWICE A DAY
     Dates: start: 20141028

REACTIONS (1)
  - Chromaturia [Recovered/Resolved]

NARRATIVE: CASE EVENT DATE: 20141028
